FAERS Safety Report 7892464 (Version 3)
Quarter: 2013Q3

REPORT INFORMATION
  Report Type: Spontaneous
  Country: None (occurrence: None)
  Receive Date: 20110321
  Receipt Date: 20130812
  Transmission Date: 20140515
  Serious: Yes (Hospitalization)
  Sender: FDA-Public Use
  Company Number: AU-022191

PATIENT
  Age: 88 Year
  Sex: Male

DRUGS (6)
  1. CHLORAMBUCIL [Suspect]
     Indication: CHRONIC LYMPHOCYTIC LEUKAEMIA
     Dosage: 52 MG (0.8 MG/KG), CURRENT CYCLE STARTED ON 19OCT2010 (52 MILLIGRAM,CYCLICAL)
     Dates: start: 20100720, end: 20101102
  2. METOPROLOL TARTRATE [Concomitant]
  3. ALLOPURINOL [Concomitant]
  4. ASPIRINE (ACETYLSALICYLIC ACID) [Concomitant]
  5. FOLIC ACID [Concomitant]
  6. TRAMADOL HYDROCHLORIDE [Concomitant]

REACTIONS (7)
  - Autoimmune haemolytic anaemia [None]
  - Anaemia [None]
  - Urinary tract infection [None]
  - Platelet count decreased [None]
  - White blood cell count increased [None]
  - Cystitis [None]
  - Bacterial test positive [None]
